FAERS Safety Report 20092538 (Version 1)
Quarter: 2021Q4

REPORT INFORMATION
  Report Type: Spontaneous
  Country: BR (occurrence: BR)
  Receive Date: 20211119
  Receipt Date: 20211119
  Transmission Date: 20220303
  Serious: Yes (Life-Threatening)
  Sender: FDA-Public Use
  Company Number: BR-002147023-NVSC2021BR258845

PATIENT

DRUGS (1)
  1. RUXOLITINIB [Suspect]
     Active Substance: RUXOLITINIB
     Indication: Myelofibrosis
     Dosage: 20 MG, 12/12H
     Route: 065
     Dates: start: 201907

REACTIONS (2)
  - Anaemia [Unknown]
  - Limb injury [Not Recovered/Not Resolved]
